FAERS Safety Report 9009344 (Version 1)
Quarter: 2013Q1

REPORT INFORMATION
  Report Type: Spontaneous
  Country: US (occurrence: US)
  Receive Date: 20130111
  Receipt Date: 20130111
  Transmission Date: 20140127
  Serious: Yes (Hospitalization)
  Sender: FDA-Public Use
  Company Number: US-009507513-1301USA002843

PATIENT
  Sex: Male

DRUGS (4)
  1. SINGULAIR [Suspect]
     Route: 064
  2. ALBUTEROL [Suspect]
     Route: 064
  3. COLACE [Suspect]
     Route: 064
  4. REBIF [Suspect]
     Route: 064

REACTIONS (2)
  - Cerebral haemorrhage neonatal [Unknown]
  - Foetal exposure during pregnancy [Unknown]
